FAERS Safety Report 7151243-8 (Version None)
Quarter: 2010Q4

REPORT INFORMATION
  Report Type: 
  Country: None (occurrence: None)
  Receive Date: 20101210
  Receipt Date: 20101129
  Transmission Date: 20110411
  Serious: Yes (Hospitalization)
  Sender: FDA-Public Use
  Company Number: JP-ELI_LILLY_AND_COMPANY-JP201011007412

PATIENT
  Age: 55 Year
  Sex: Female

DRUGS (5)
  1. FORTEO [Suspect]
     Dosage: UNK, UNKNOWN
     Route: 058
     Dates: start: 20101127
  2. RHEUMATREX [Concomitant]
     Indication: MUSCULOSKELETAL PAIN
     Dosage: UNK, UNKNOWN
     Route: 065
  3. BARACLUDE [Concomitant]
     Indication: HEPATITIS B
     Dosage: UNK, UNKNOWN
     Route: 065
  4. BETAMETHASONE [Concomitant]
     Dosage: UNK, UNKNOWN
     Route: 065
  5. TAKEPRON [Concomitant]
     Dosage: UNK, UNKNOWN
     Route: 065

REACTIONS (1)
  - HYPOAESTHESIA [None]
